FAERS Safety Report 8923273 (Version 1)
Quarter: 2012Q4

REPORT INFORMATION
  Report Type: Spontaneous
  Country: US (occurrence: None)
  Receive Date: 20121115
  Receipt Date: 20121115
  Transmission Date: 20130627
  Serious: No
  Sender: FDA-Public Use
  Company Number: None

PATIENT
  Age: 66 Year
  Sex: Female

DRUGS (1)
  1. BUPROPION [Suspect]
     Dates: start: 20090612, end: 20101108

REACTIONS (4)
  - Urinary tract infection [None]
  - Drug resistance [None]
  - Rash [None]
  - Hepatic enzyme increased [None]
